FAERS Safety Report 10308813 (Version 2)
Quarter: 2014Q4

REPORT INFORMATION
  Report Type: Spontaneous
  Country: US (occurrence: US)
  Receive Date: 20140716
  Receipt Date: 20141010
  Transmission Date: 20150528
  Serious: Yes (Hospitalization, Other)
  Sender: FDA-Public Use
  Company Number: US-FRI-1000069002

PATIENT
  Age: 73 Year
  Sex: Female

DRUGS (6)
  1. HUMALOG [Concomitant]
     Active Substance: INSULIN LISPRO
     Indication: TYPE 2 DIABETES MELLITUS
  2. NORVASC [Concomitant]
     Active Substance: AMLODIPINE BESYLATE
     Indication: HYPERTENSION
     Dosage: 10 MG
  3. OXYCODONE [Concomitant]
     Active Substance: OXYCODONE
  4. LANTUS [Concomitant]
     Active Substance: INSULIN GLARGINE
     Indication: TYPE 2 DIABETES MELLITUS
  5. LINZESS [Suspect]
     Active Substance: LINACLOTIDE
     Indication: CONSTIPATION
     Dosage: 290 MCG
     Route: 048
     Dates: start: 201406, end: 20140713
  6. IRON [Concomitant]
     Active Substance: IRON

REACTIONS (8)
  - Cardiac disorder [Unknown]
  - Nausea [Unknown]
  - Diarrhoea [Recovered/Resolved]
  - Intentional product misuse [Recovered/Resolved]
  - Hypertension [Unknown]
  - Decreased appetite [Unknown]
  - Blood glucose fluctuation [Unknown]
  - Drug ineffective [Recovered/Resolved]

NARRATIVE: CASE EVENT DATE: 2014
